FAERS Safety Report 5802634-6 (Version None)
Quarter: 2008Q3

REPORT INFORMATION
  Report Type: 
  Country: None (occurrence: None)
  Receive Date: 20080708
  Receipt Date: 20080703
  Transmission Date: 20090109
  Serious: Yes (Hospitalization)
  Sender: FDA-Public Use
  Company Number: GB-BRISTOL-MYERS SQUIBB COMPANY-14184121

PATIENT
  Age: 40 Year
  Sex: Female

DRUGS (5)
  1. KENALOG [Suspect]
     Indication: PERIARTHRITIS
     Route: 014
     Dates: start: 20080226, end: 20080226
  2. KENALOG [Suspect]
     Indication: TENDON DISORDER
     Route: 014
     Dates: start: 20080226, end: 20080226
  3. KENALOG [Suspect]
     Indication: CARPAL TUNNEL SYNDROME
     Route: 014
     Dates: start: 20080226, end: 20080226
  4. LIDOCAINE [Suspect]
  5. MIRTAZAPINE [Concomitant]
     Indication: DEPRESSION
     Route: 048
     Dates: start: 20061215, end: 20080327

REACTIONS (2)
  - MENORRHAGIA [None]
  - PELVIC PAIN [None]
